FAERS Safety Report 18651560 (Version 1)
Quarter: 2020Q4

REPORT INFORMATION
  Report Type: Spontaneous
  Country: US (occurrence: US)
  Receive Date: 20201222
  Receipt Date: 20201222
  Transmission Date: 20210114
  Serious: Yes (Other)
  Sender: FDA-Public Use
  Company Number: US-CELGENEUS-USA-20201205322

PATIENT

DRUGS (2)
  1. PU-H71 [Concomitant]
     Active Substance: INVESTIGATIONAL PRODUCT
     Indication: HER2 NEGATIVE BREAST CANCER
     Dosage: 300 MG/M2
     Route: 065
  2. ABRAXANE [Suspect]
     Active Substance: PACLITAXEL
     Indication: HER2 NEGATIVE BREAST CANCER
     Dosage: 260 MG/M2
     Route: 065

REACTIONS (1)
  - Febrile neutropenia [Recovered/Resolved]
